FAERS Safety Report 6194319-4 (Version None)
Quarter: 2009Q2

REPORT INFORMATION
  Report Type: 
  Country: None (occurrence: None)
  Receive Date: 20090519
  Receipt Date: 20090512
  Transmission Date: 20091009
  Serious: Yes (Death, Other)
  Sender: FDA-Public Use
  Company Number: CA-CELGENEUS-028-21880-09040383

PATIENT
  Sex: Male

DRUGS (1)
  1. REVLIMID [Suspect]
     Indication: MYELOFIBROSIS
     Dosage: END OF DAY
     Route: 048
     Dates: start: 20080201, end: 20090301

REACTIONS (3)
  - ACUTE LEUKAEMIA [None]
  - EXTRAMEDULLARY HAEMOPOIESIS [None]
  - MYELOFIBROSIS [None]
